FAERS Safety Report 7202220-X (Version None)
Quarter: 2010Q4

REPORT INFORMATION
  Report Type: 
  Country: None (occurrence: None)
  Receive Date: 20101220
  Receipt Date: 20101203
  Transmission Date: 20110411
  Serious: Yes (Other)
  Sender: FDA-Public Use
  Company Number: 2010AM003484

PATIENT
  Age: 52 Year
  Sex: Male
  Weight: 77.0208 kg

DRUGS (2)
  1. SYMLINPEN 120 (PRAMLINTIDE ACETATE) PEN-INJECTOR (0.6 MG/ML) [Suspect]
     Indication: TYPE 2 DIABETES MELLITUS
     Dosage: 120 MCG;TID; SC,  60 MCG;TID; SC
     Route: 058
     Dates: start: 20100901, end: 20101101
  2. SYMLINPEN 120 (PRAMLINTIDE ACETATE) PEN-INJECTOR (0.6 MG/ML) [Suspect]
     Indication: TYPE 2 DIABETES MELLITUS
     Dosage: 120 MCG;TID; SC,  60 MCG;TID; SC
     Route: 058
     Dates: start: 20101101

REACTIONS (1)
  - BIOPSY OESOPHAGUS [None]
